FAERS Safety Report 7623714-9 (Version None)
Quarter: 2011Q3

REPORT INFORMATION
  Report Type: 
  Country: None (occurrence: None)
  Receive Date: 20110720
  Receipt Date: 20110418
  Transmission Date: 20111222
  Serious: Yes (Hospitalization)
  Sender: FDA-Public Use
  Company Number: US-GLAXOSMITHKLINE-A0923852A

PATIENT
  Age: 57 Year
  Sex: Female

DRUGS (1)
  1. AVANDIA [Suspect]
     Indication: DIABETES MELLITUS
     Dosage: 4MG PER DAY
     Route: 048
     Dates: start: 20040529, end: 20070621

REACTIONS (4)
  - TROPONIN INCREASED [None]
  - ACUTE MYOCARDIAL INFARCTION [None]
  - HEART RATE IRREGULAR [None]
  - CORONARY ARTERY DISEASE [None]
